FAERS Safety Report 5500832-2 (Version None)
Quarter: 2007Q4

REPORT INFORMATION
  Report Type: 
  Country: None (occurrence: None)
  Receive Date: 20071029
  Receipt Date: 20071021
  Transmission Date: 20080405
  Serious: Yes (Life-Threatening)
  Sender: FDA-Public Use
  Company Number: B0492133A

PATIENT
  Age: 69 Year
  Sex: Female

DRUGS (1)
  1. AQUAFRESH FRESH N MINTY TOOTHPASTE [Suspect]

REACTIONS (5)
  - ANAPHYLACTIC REACTION [None]
  - ORAL DISCOMFORT [None]
  - PHARMACEUTICAL PRODUCT COMPLAINT [None]
  - SWELLING FACE [None]
  - SWOLLEN TONGUE [None]
